FAERS Safety Report 5383806-4 (Version None)
Quarter: 2007Q3

REPORT INFORMATION
  Report Type: 
  Country: None (occurrence: None)
  Receive Date: 20070711
  Receipt Date: 20070625
  Transmission Date: 20080115
  Serious: Yes (Hospitalization)
  Sender: FDA-Public Use
  Company Number: DK-SHR-DK-2007-024282

PATIENT
  Age: 21 Year
  Sex: Female
  Weight: 86 kg

DRUGS (2)
  1. VIBRADOX [Suspect]
     Indication: MALARIA PROPHYLAXIS
     Dosage: 200 MG, 21D/28D
     Route: 048
     Dates: start: 20060901, end: 20070228
  2. YASMIN [Suspect]
     Indication: ORAL CONTRACEPTION
     Dosage: 1 TAB(S), 21D/28D
     Route: 048
     Dates: start: 20050401, end: 20070301

REACTIONS (11)
  - BENIGN INTRACRANIAL HYPERTENSION [None]
  - DIPLOPIA [None]
  - HEADACHE [None]
  - INFLUENZA LIKE ILLNESS [None]
  - INTRACRANIAL PRESSURE INCREASED [None]
  - OPTIC DISC DISORDER [None]
  - PAPILLOEDEMA [None]
  - PHOTOPHOBIA [None]
  - RED BLOOD CELL SEDIMENTATION RATE INCREASED [None]
  - SCOTOMA [None]
  - VITH NERVE DISORDER [None]
